FAERS Safety Report 23718040 (Version 2)
Quarter: 2024Q2

REPORT INFORMATION
  Report Type: Spontaneous
  Country: GB (occurrence: GB)
  Receive Date: 20240408
  Receipt Date: 20240509
  Transmission Date: 20240716
  Serious: Yes (Hospitalization, Other)
  Sender: FDA-Public Use
  Company Number: None

PATIENT
  Age: 63 Year
  Sex: Female

DRUGS (1)
  1. ANASTROZOLE [Suspect]
     Active Substance: ANASTROZOLE
     Indication: Product used for unknown indication
     Dosage: ONCE A DAY
     Route: 065
     Dates: start: 20231108, end: 20240327

REACTIONS (5)
  - Endometrial hyperplasia [Unknown]
  - Uterine pain [Recovered/Resolved]
  - Uterine polyp [Recovered/Resolved]
  - Abdominal pain [Unknown]
  - Blood pressure increased [Recovered/Resolved]

NARRATIVE: CASE EVENT DATE: 20240331
